FAERS Safety Report 9369749 (Version 1)
Quarter: 2013Q3

REPORT INFORMATION
  Report Type: Spontaneous
  Country: US (occurrence: None)
  Receive Date: 20130625
  Receipt Date: 20130625
  Transmission Date: 20140515
  Serious: Yes (Other)
  Sender: FDA-Public Use
  Company Number: None

PATIENT
  Age: 76 Year
  Sex: Female

DRUGS (10)
  1. BENEFIBER [Suspect]
     Indication: NUTRITIONAL SUPPLEMENTATION
     Route: 048
     Dates: start: 2003
  2. BENEFIBER [Suspect]
     Indication: CONSTIPATION
     Route: 048
     Dates: start: 2003
  3. PLAVIX [Suspect]
  4. LIPITOR [Suspect]
     Indication: BLOOD CHOLESTEROL INCREASED
  5. CRESTOR (ROSUVASTATIN CALCIUM) [Suspect]
     Indication: BLOOD CHOLESTEROL INCREASED
  6. BISOPROLOL FUMARATE [Concomitant]
  7. LOSARTAN POTASSIUM (LOSARTAN POTASSIUM) [Concomitant]
  8. L THYROXINE [Concomitant]
  9. JANUMET (METFORMIN HYDROCHLORIDE, SITAGLIPTIN PHOSPHATE MONOHYDRATE) [Concomitant]
  10. PERDIEM OVERNIGHT RELIEF (SENNOSIDE A+B) [Concomitant]

REACTIONS (7)
  - Cataract [None]
  - Blood cholesterol increased [None]
  - Ocular hyperaemia [None]
  - Eye pain [None]
  - Headache [None]
  - Constipation [None]
  - Off label use [None]
